FAERS Safety Report 8746224 (Version 3)
Quarter: 2013Q2

REPORT INFORMATION
  Report Type: Report from Study
  Country: DE (occurrence: DE)
  Receive Date: 20120827
  Receipt Date: 20130411
  Transmission Date: 20140414
  Serious: Yes (Hospitalization)
  Sender: FDA-Public Use
  Company Number: DE-UCBSA-058011

PATIENT
  Sex: Female
  Weight: 105 kg

DRUGS (12)
  1. CERTOLIZUMAB PEGOL [Suspect]
     Indication: RHEUMATOID ARTHRITIS
     Dosage: NO OF DOSES RECEIVED-43
     Route: 058
     Dates: start: 20101209
  2. FOLIC ACID [Concomitant]
     Indication: PROPHYLAXIS
     Route: 048
     Dates: start: 20080221
  3. METEX [Concomitant]
     Indication: RHEUMATOID ARTHRITIS
     Route: 058
     Dates: start: 20080220
  4. L-THYROXINE [Concomitant]
     Indication: HYPOTHYROIDISM
     Route: 048
     Dates: start: 1997
  5. SIMVASTATIN [Concomitant]
     Indication: HYPERCHOLESTEROLAEMIA
     Route: 048
     Dates: start: 20100225
  6. METOPROLOL [Concomitant]
     Indication: HYPERTENSION
     Route: 048
     Dates: start: 20100225
  7. METOPROLOL [Concomitant]
     Indication: HYPERTENSION
     Route: 048
     Dates: start: 2006
  8. RAMIPRIL [Concomitant]
     Indication: HYPERTENSION
     Route: 048
     Dates: start: 20100225, end: 20120525
  9. ASS [Concomitant]
     Indication: CORONARY ARTERY DISEASE
     Route: 048
     Dates: start: 20100225
  10. DEKRISTOL [Concomitant]
     Indication: OSTEOPOROSIS PROPHYLAXIS
     Route: 048
     Dates: start: 20090914
  11. DEKRISTOL [Concomitant]
     Indication: VITAMIN D DEFICIENCY
     Route: 048
     Dates: start: 20090914
  12. TRAMAGIT [Concomitant]
     Indication: PAIN
     Dosage: 150 MG PRN
     Route: 048
     Dates: start: 20080707

REACTIONS (2)
  - Dyspnoea [Recovered/Resolved]
  - Varicophlebitis [Recovered/Resolved]
